FAERS Safety Report 23565982 (Version 3)
Quarter: 2024Q2

REPORT INFORMATION
  Report Type: Report from Study
  Country: GB (occurrence: GB)
  Receive Date: 20240226
  Receipt Date: 20240424
  Transmission Date: 20240716
  Serious: Yes (Other)
  Sender: FDA-Public Use
  Company Number: GB-TAKEDA-2024TUS017305

PATIENT
  Sex: Female

DRUGS (1)
  1. VEDOLIZUMAB [Suspect]
     Active Substance: VEDOLIZUMAB
     Indication: Colitis ulcerative
     Dosage: 108 MILLIGRAM, Q2WEEKS
     Route: 058
     Dates: end: 20240405

REACTIONS (11)
  - Spinal fracture [Unknown]
  - Neuralgia [Unknown]
  - Fall [Unknown]
  - Lower limb fracture [Unknown]
  - Foot fracture [Unknown]
  - Peripheral swelling [Unknown]
  - Road traffic accident [Unknown]
  - Paraesthesia [Unknown]
  - Muscular weakness [Unknown]
  - Arthralgia [Unknown]
  - Pain in extremity [Unknown]
